FAERS Safety Report 17246220 (Version 2)
Quarter: 2020Q1

REPORT INFORMATION
  Report Type: Spontaneous
  Country: US (occurrence: US)
  Receive Date: 20200108
  Receipt Date: 20200310
  Transmission Date: 20200409
  Serious: Yes (Other)
  Sender: FDA-Public Use
  Company Number: US-SA-2020SA002139

PATIENT
  Age: 38 Year
  Sex: Female
  Weight: 51.7 kg

DRUGS (1)
  1. LANTUS [Suspect]
     Active Substance: INSULIN GLARGINE
     Indication: TYPE 1 DIABETES MELLITUS
     Dosage: UNK
     Route: 065

REACTIONS (11)
  - Unevaluable event [Unknown]
  - Hypoaesthesia [Unknown]
  - Migraine [Unknown]
  - Weight gain poor [Unknown]
  - Chest pain [Unknown]
  - Drug hypersensitivity [Unknown]
  - Neuropathy peripheral [Recovering/Resolving]
  - Anaemia [Unknown]
  - Hypovitaminosis [Unknown]
  - Impaired gastric emptying [Unknown]
  - Breast mass [Unknown]
